FAERS Safety Report 8891197 (Version 1)
Quarter: 2012Q4

REPORT INFORMATION
  Report Type: 
  Country: US (occurrence: US)
  Receive Date: 20121107
  Receipt Date: 20121107
  Transmission Date: 20130627
  Serious: No
  Sender: FDA-Public Use
  Company Number: US-PFIZER INC-2012276392

PATIENT
  Sex: Female

DRUGS (4)
  1. LYRICA [Suspect]
     Dosage: UNK
  2. ACTOSE [Concomitant]
  3. METFORMIN [Concomitant]
  4. VICTOZA [Concomitant]
     Dosage: 1.2 mm

REACTIONS (3)
  - Diabetic neuropathy [Unknown]
  - Sensation of heaviness [Unknown]
  - Gait disturbance [Unknown]
